FAERS Safety Report 6425381-9 (Version None)
Quarter: 2009Q4

REPORT INFORMATION
  Report Type: 
  Country: None (occurrence: None)
  Receive Date: 20091103
  Receipt Date: 20091029
  Transmission Date: 20100525
  Serious: Yes (Other)
  Sender: FDA-Public Use
  Company Number: B0601095A

PATIENT
  Age: 49 Year
  Sex: Female

DRUGS (2)
  1. ELONTRIL [Suspect]
     Indication: DEPRESSION
     Dosage: 150MG PER DAY
     Route: 048
     Dates: start: 20090701
  2. PLAVIX [Concomitant]

REACTIONS (2)
  - CEREBRAL ARTERY EMBOLISM [None]
  - MEDICATION RESIDUE [None]
